FAERS Safety Report 15562040 (Version 1)
Quarter: 2018Q4

REPORT INFORMATION
  Report Type: Spontaneous
  Country: US (occurrence: US)
  Receive Date: 20181029
  Receipt Date: 20181029
  Transmission Date: 20190205
  Serious: Yes (Other)
  Sender: FDA-Public Use
  Company Number: None

PATIENT
  Age: 83 Year
  Sex: Male
  Weight: 79.2 kg

DRUGS (16)
  1. CALTRATE [Concomitant]
     Active Substance: CALCIUM CARBONATE
  2. LOPERAMIDE [Concomitant]
     Active Substance: LOPERAMIDE
  3. APAP [Concomitant]
     Active Substance: ACETAMINOPHEN
  4. ZYTIGA [Suspect]
     Active Substance: ABIRATERONE ACETATE
     Indication: PROSTATE CANCER
     Route: 048
     Dates: start: 20180814
  5. LOSARTAN. [Concomitant]
     Active Substance: LOSARTAN
  6. SIMVASTATIN. [Concomitant]
     Active Substance: SIMVASTATIN
  7. BICALUTAMIDE. [Concomitant]
     Active Substance: BICALUTAMIDE
  8. ATENOLOL. [Concomitant]
     Active Substance: ATENOLOL
  9. TAMSULOSIN [Concomitant]
     Active Substance: TAMSULOSIN
  10. OMEPRAZOLE. [Concomitant]
     Active Substance: OMEPRAZOLE
  11. FUROSEMIDE. [Concomitant]
     Active Substance: FUROSEMIDE
  12. MELATONEX [Concomitant]
  13. WARFARIN [Concomitant]
     Active Substance: WARFARIN
  14. SPIRONOLACTONE. [Concomitant]
     Active Substance: SPIRONOLACTONE
  15. DOXYLAMINE [Concomitant]
     Active Substance: DOXYLAMINE
  16. PREDNISONE. [Concomitant]
     Active Substance: PREDNISONE

REACTIONS (1)
  - Dyspnoea [None]

NARRATIVE: CASE EVENT DATE: 20181029
